FAERS Safety Report 26086483 (Version 1)
Quarter: 2025Q4

REPORT INFORMATION
  Report Type: Spontaneous
  Country: US (occurrence: US)
  Receive Date: 20251125
  Receipt Date: 20251125
  Transmission Date: 20260117
  Serious: No
  Sender: AUROBINDO
  Company Number: US-AUROBINDO-AUR-APL-2025-044557

PATIENT
  Age: 82 Year
  Sex: Female

DRUGS (1)
  1. FLUCONAZOLE [Suspect]
     Active Substance: FLUCONAZOLE
     Indication: Urinary tract infection
     Dosage: 200 MILLIGRAM, ONCE A DAY
     Dates: start: 20250819

REACTIONS (3)
  - Head discomfort [Unknown]
  - Dizziness [Unknown]
  - Drug ineffective [Unknown]
